FAERS Safety Report 26009690 (Version 1)
Quarter: 2025Q4

REPORT INFORMATION
  Report Type: Spontaneous
  Country: EU (occurrence: EU)
  Receive Date: 20251107
  Receipt Date: 20251107
  Transmission Date: 20260118
  Serious: Yes (Other)
  Sender: ROCHE
  Company Number: EU-ROCHE-10000426596

PATIENT
  Age: 77 Year
  Sex: Male

DRUGS (1)
  1. ALECTINIB [Suspect]
     Active Substance: ALECTINIB
     Indication: Lung adenocarcinoma
     Route: 065
     Dates: start: 20231213

REACTIONS (4)
  - Anaemia [Unknown]
  - Asthenia [Unknown]
  - Hepatitis [Recovered/Resolved]
  - Oedema [Unknown]
